FAERS Safety Report 10241254 (Version 1)
Quarter: 2014Q2

REPORT INFORMATION
  Report Type: Spontaneous
  Country: KR (occurrence: KR)
  Receive Date: 20140617
  Receipt Date: 20140617
  Transmission Date: 20141212
  Serious: Yes (Hospitalization)
  Sender: FDA-Public Use
  Company Number: KR-B.I. PHARMACEUTICALS,INC./RIDGEFIELD-2014-BI-27104YA

PATIENT
  Age: 58 Year
  Sex: Male
  Weight: 69 kg

DRUGS (12)
  1. TAMSULOSINA [Suspect]
     Indication: BENIGN PROSTATIC HYPERPLASIA
     Dosage: 0.2 MG
     Route: 048
     Dates: start: 20120817
  2. FINASTERIDE [Suspect]
     Indication: BENIGN PROSTATIC HYPERPLASIA
     Dosage: 5 MG
     Route: 048
     Dates: start: 20120817
  3. TYLENOL [Suspect]
     Indication: ANALGESIC THERAPY
     Dosage: 9 ANZ
     Route: 048
     Dates: start: 20140308, end: 20140310
  4. SILDENAFIL [Concomitant]
     Indication: ERECTILE DYSFUNCTION
     Route: 065
     Dates: start: 20120917
  5. DIAMOX [Concomitant]
     Indication: POLYURIA
     Route: 065
     Dates: start: 20140307, end: 20140307
  6. MANNITOL 20% A.N.B [Concomitant]
     Indication: POLYURIA
     Route: 065
     Dates: start: 20140307, end: 20140307
  7. HARTMAN [Concomitant]
     Indication: PLASMA EXPANDER TRANSFUSION
     Route: 065
     Dates: start: 20140307, end: 20140307
  8. KEROMIN [Concomitant]
     Indication: ANALGESIC THERAPY
     Route: 065
     Dates: start: 20140307, end: 20140307
  9. CEFAMEZIN [Concomitant]
     Indication: ANTIBIOTIC THERAPY
     Route: 065
     Dates: start: 20140307, end: 20140307
  10. DOPRIUM [Concomitant]
     Indication: MUSCLE SPASMS
     Route: 065
     Dates: start: 20140308, end: 20140310
  11. BAROTASE [Concomitant]
     Indication: INFLAMMATION
     Route: 065
     Dates: start: 20140308, end: 20140310
  12. CEFRADINE [Concomitant]
     Indication: ANTIBIOTIC THERAPY
     Route: 065
     Dates: start: 20140308, end: 20140310

REACTIONS (3)
  - Cataract [Recovered/Resolved]
  - Headache [Recovered/Resolved]
  - Pruritus [Recovered/Resolved]
